FAERS Safety Report 22315139 (Version 4)
Quarter: 2023Q2

REPORT INFORMATION
  Report Type: Report from Study
  Country: US (occurrence: None)
  Receive Date: 20230512
  Receipt Date: 20230619
  Transmission Date: 20230721
  Serious: Yes (Death, Hospitalization)
  Sender: FDA-Public Use
  Company Number: US-ROCHE-3348161

PATIENT
  Age: 71 Year
  Sex: Female
  Weight: 62.6 kg

DRUGS (20)
  1. ATEZOLIZUMAB [Suspect]
     Active Substance: ATEZOLIZUMAB
     Indication: Ductal adenocarcinoma of pancreas
     Dosage: MOST RECENT DOSE OF ATEZOLIZUMAB ADMININSTERD ON 01/MAY/2023
     Route: 041
     Dates: start: 20230411, end: 20230411
  2. BUPARLISIB [Suspect]
     Active Substance: BUPARLISIB
     Indication: Ductal adenocarcinoma of pancreas
     Dosage: MOST RECENT DOSE OF BUPARLISIB  ADMININSTERD ON 01/MAY/2023
     Route: 048
     Dates: start: 20230411
  3. BUPARLISIB [Suspect]
     Active Substance: BUPARLISIB
     Route: 048
     Dates: start: 20230427, end: 20230501
  4. LOMOTIL [Concomitant]
     Active Substance: ATROPINE SULFATE\DIPHENOXYLATE HYDROCHLORIDE
  5. LOPERAMIDE [Concomitant]
     Active Substance: LOPERAMIDE
     Dates: start: 202303
  6. DULOXETINE [Concomitant]
     Active Substance: DULOXETINE
     Dates: start: 202212
  7. METOCLOPRAMIDE [Concomitant]
     Active Substance: METOCLOPRAMIDE
     Dates: start: 202211
  8. ONDANSETRON [Concomitant]
     Active Substance: ONDANSETRON
     Dates: start: 202209
  9. OLANZAPINE [Concomitant]
     Active Substance: OLANZAPINE
     Dates: start: 202211
  10. METHYLPHENIDATE HYDROCHLORIDE [Concomitant]
     Active Substance: METHYLPHENIDATE HYDROCHLORIDE
     Dates: start: 202303
  11. OPIUM TINCTURE [Concomitant]
     Active Substance: MORPHINE
     Dates: start: 202304
  12. ALDACTONE [Concomitant]
     Active Substance: SPIRONOLACTONE
     Dates: start: 202303
  13. OMEPRAZOLE [Concomitant]
     Active Substance: OMEPRAZOLE
     Dates: start: 202206
  14. ACETAMINOPHEN [Concomitant]
     Active Substance: ACETAMINOPHEN
     Dates: start: 202211
  15. OXYCODONE [Concomitant]
     Active Substance: OXYCODONE
     Dates: start: 202211
  16. HYDROMORPHONE [Concomitant]
     Active Substance: HYDROMORPHONE
     Dates: start: 20230421
  17. IRINOTECAN HYDROCHLORIDE [Concomitant]
     Active Substance: IRINOTECAN HYDROCHLORIDE
     Dates: start: 20230303, end: 20230429
  18. IRINOTECAN HYDROCHLORIDE [Concomitant]
     Active Substance: IRINOTECAN HYDROCHLORIDE
     Dates: start: 20221201, end: 20230112
  19. OXALIPLATIN [Concomitant]
     Active Substance: OXALIPLATIN
     Indication: Chemotherapy
     Dates: start: 20230303, end: 20230429
  20. METOCLOPRAMIDE [Concomitant]
     Active Substance: METOCLOPRAMIDE
     Indication: Nausea

REACTIONS (3)
  - Disease progression [Fatal]
  - Dehydration [Recovered/Resolved]
  - Dehydration [Recovered/Resolved with Sequelae]

NARRATIVE: CASE EVENT DATE: 20230423
